FAERS Safety Report 20543128 (Version 2)
Quarter: 2023Q1

REPORT INFORMATION
  Report Type: Spontaneous
  Country: US (occurrence: None)
  Receive Date: 20220302
  Receipt Date: 20230223
  Transmission Date: 20230418
  Serious: No
  Sender: FDA-Public Use
  Company Number: US-ROCHE-2795866

PATIENT
  Age: 10 Year
  Sex: Male
  Weight: 30.418 kg

DRUGS (4)
  1. NUTROPIN [Suspect]
     Active Substance: SOMATROPIN
     Indication: Hypopituitarism
     Dosage: 10MG/2ML
     Route: 058
     Dates: start: 201804
  2. NUTROPIN [Suspect]
     Active Substance: SOMATROPIN
  3. NUTROPIN [Suspect]
     Active Substance: SOMATROPIN
     Indication: Growth hormone deficiency
     Dosage: STRENGTH 10 MG/2ML
     Route: 058
     Dates: start: 201806
  4. NUTROPIN [Suspect]
     Active Substance: SOMATROPIN

REACTIONS (6)
  - Device malfunction [Unknown]
  - Drug delivery system issue [Unknown]
  - Injury [Unknown]
  - Off label use [Unknown]
  - Pain [Recovered/Resolved]
  - Device issue [Unknown]

NARRATIVE: CASE EVENT DATE: 20210226
